FAERS Safety Report 9156454 (Version 1)
Quarter: 2013Q1

REPORT INFORMATION
  Report Type: Spontaneous
  Country: GB (occurrence: None)
  Receive Date: 20130204
  Receipt Date: 20130204
  Transmission Date: 20140127
  Serious: Yes (Disabling)
  Sender: FDA-Public Use
  Company Number: DSA_62118_2013

PATIENT
  Age: 42 Year
  Sex: Male

DRUGS (8)
  1. METRONIDAZOLE (METRONIDAZOLE) [Suspect]
     Indication: PILONIDAL CYST
     Dates: start: 20130108, end: 20130109
  2. CIPROFLOXACIN HYDROCHLORIDE (CIPROFLOXACIN HYDROCHLORIDE) [Suspect]
     Indication: PILONIDAL CYST
     Dates: start: 20130108, end: 20130109
  3. ERYTHROMYCIN [Concomitant]
  4. CO-CODAMOL [Concomitant]
  5. MORPHINE SULFATE [Concomitant]
  6. TRAMADOL HYDROCHLORIDE [Concomitant]
  7. PARACETAMOL [Concomitant]
  8. IBUPROFEN [Concomitant]

REACTIONS (1)
  - Deafness bilateral [None]
